FAERS Safety Report 12124588 (Version 1)
Quarter: 2016Q1

REPORT INFORMATION
  Report Type: Spontaneous
  Country: US (occurrence: None)
  Receive Date: 20160226
  Receipt Date: 20160226
  Transmission Date: 20160526
  Serious: No
  Sender: FDA-Public Use
  Company Number: None

PATIENT
  Age: 52 Year
  Sex: Male
  Weight: 85 kg

DRUGS (1)
  1. NUVIGIL [Suspect]
     Active Substance: ARMODAFINIL
     Dates: end: 20160127

REACTIONS (5)
  - Repetitive speech [None]
  - Memory impairment [None]
  - Feeling abnormal [None]
  - Balance disorder [None]
  - Confusional state [None]

NARRATIVE: CASE EVENT DATE: 20160215
